FAERS Safety Report 23874629 (Version 1)
Quarter: 2024Q2

REPORT INFORMATION
  Report Type: Spontaneous
  Country: JP (occurrence: JP)
  Receive Date: 20240520
  Receipt Date: 20240520
  Transmission Date: 20240716
  Serious: Yes (Other)
  Sender: FDA-Public Use
  Company Number: JP-PFIZER INC-PV202400062037

PATIENT
  Age: 35 Year
  Sex: Male

DRUGS (2)
  1. INFLIXIMAB [Suspect]
     Active Substance: INFLIXIMAB
     Indication: Pustular psoriasis
     Dosage: 380 MG (5 MG/KG)
  2. ADALIMUMAB [Concomitant]
     Active Substance: ADALIMUMAB\ISOPROPYL ALCOHOL
     Indication: Pustular psoriasis
     Dosage: 80 MG

REACTIONS (4)
  - Leukoencephalopathy [Recovered/Resolved]
  - Optic neuritis [Recovered/Resolved]
  - Infusion related reaction [Unknown]
  - Off label use [Unknown]
